FAERS Safety Report 6455999-9 (Version None)
Quarter: 2009Q4

REPORT INFORMATION
  Report Type: 
  Country: None (occurrence: None)
  Receive Date: 20091119
  Receipt Date: 20091110
  Transmission Date: 20100525
  Serious: Yes (Hospitalization)
  Sender: FDA-Public Use
  Company Number: 2009SP035499

PATIENT
  Age: 44 Year
  Sex: Male
  Weight: 80 kg

DRUGS (9)
  1. REMERGIL             (MIRTAZAPINE) [Suspect]
     Indication: DEPRESSION
     Dosage: 15 MG;QD;PO; 30 MG;QD;PO; 15 MG;QD;PO
     Route: 048
     Dates: start: 20090213, end: 20090216
  2. REMERGIL             (MIRTAZAPINE) [Suspect]
     Indication: DEPRESSION
     Dosage: 15 MG;QD;PO; 30 MG;QD;PO; 15 MG;QD;PO
     Route: 048
     Dates: start: 20090217, end: 20090617
  3. REMERGIL             (MIRTAZAPINE) [Suspect]
     Indication: DEPRESSION
     Dosage: 15 MG;QD;PO; 30 MG;QD;PO; 15 MG;QD;PO
     Route: 048
     Dates: start: 20090618, end: 20090622
  4. VALPROATE SODIUM [Suspect]
     Indication: DEPRESSION
     Dosage: 300 MG;QD;PO; 450 MG;QD;PO; 750 MG;QD;PO; 900 MG;QD;PO
     Route: 048
     Dates: start: 20090214, end: 20090214
  5. VALPROATE SODIUM [Suspect]
     Indication: DEPRESSION
     Dosage: 300 MG;QD;PO; 450 MG;QD;PO; 750 MG;QD;PO; 900 MG;QD;PO
     Route: 048
     Dates: start: 20090215, end: 20090215
  6. VALPROATE SODIUM [Suspect]
     Indication: DEPRESSION
     Dosage: 300 MG;QD;PO; 450 MG;QD;PO; 750 MG;QD;PO; 900 MG;QD;PO
     Route: 048
     Dates: start: 20090216, end: 20090308
  7. VALPROATE SODIUM [Suspect]
     Indication: DEPRESSION
     Dosage: 300 MG;QD;PO; 450 MG;QD;PO; 750 MG;QD;PO; 900 MG;QD;PO
     Route: 048
     Dates: start: 20090309, end: 20090420
  8. REBOXETIN [Concomitant]
  9. ESCITALOPRAM [Concomitant]

REACTIONS (5)
  - CONDITION AGGRAVATED [None]
  - DEPRESSION [None]
  - SELF ESTEEM DECREASED [None]
  - SOCIAL AVOIDANT BEHAVIOUR [None]
  - WEIGHT INCREASED [None]
